FAERS Safety Report 25858831 (Version 1)
Quarter: 2025Q3

REPORT INFORMATION
  Report Type: Spontaneous
  Country: CN (occurrence: CN)
  Receive Date: 20250929
  Receipt Date: 20250929
  Transmission Date: 20251021
  Serious: Yes (Death, Other)
  Sender: AMGEN
  Company Number: CN-AMGEN-CHNSP2025191822

PATIENT

DRUGS (3)
  1. BLINATUMOMAB [Suspect]
     Active Substance: BLINATUMOMAB
     Indication: B-cell type acute leukaemia
     Dosage: 28 MICROGRAM, QD, FOR 14 D, }_45 KG
     Route: 065
  2. BLINATUMOMAB [Suspect]
     Active Substance: BLINATUMOMAB
     Indication: Minimal residual disease
     Dosage: 15 MICROGRAM/SQ. METER, QD, FOR 14 D, {45 KG
     Route: 065
  3. COTRIMOXAZOLE [Concomitant]
     Active Substance: SULFAMETHOXAZOLE\TRIMETHOPRIM
     Indication: Antifungal prophylaxis
     Route: 048

REACTIONS (14)
  - Acute lymphocytic leukaemia recurrent [Fatal]
  - Haemorrhage intracranial [Fatal]
  - Acute graft versus host disease [Recovering/Resolving]
  - Cytokine release syndrome [Recovering/Resolving]
  - Encephalitis viral [Recovering/Resolving]
  - Klebsiella bacteraemia [Recovering/Resolving]
  - Chronic graft versus host disease oral [Unknown]
  - Chronic graft versus host disease in skin [Unknown]
  - Chronic graft versus host disease in eye [Unknown]
  - Chronic graft versus host disease in liver [Unknown]
  - COVID-19 [Recovering/Resolving]
  - Herpes zoster [Recovering/Resolving]
  - Staphylococcal infection [Recovering/Resolving]
  - Pyrexia [Recovering/Resolving]
